FAERS Safety Report 14338100 (Version 1)
Quarter: 2017Q4

REPORT INFORMATION
  Report Type: Spontaneous
  Country: ES (occurrence: ES)
  Receive Date: 20171229
  Receipt Date: 20171229
  Transmission Date: 20180321
  Serious: Yes (Hospitalization)
  Sender: FDA-Public Use
  Company Number: ES-PFIZER INC-2017550417

PATIENT
  Age: 89 Year
  Sex: Female

DRUGS (7)
  1. HYDROCHLOROTHIAZIDE. [Interacting]
     Active Substance: HYDROCHLOROTHIAZIDE
     Dosage: 50 MG, 1X/DAY
     Route: 048
     Dates: start: 20170220, end: 20170225
  2. LEVOTHYROXINE. [Concomitant]
     Active Substance: LEVOTHYROXINE
     Indication: HYPOTHYROIDISM
     Dosage: 75 UG, 1X/DAY (1CP)
     Route: 048
     Dates: start: 20120220
  3. SPIRONOLACTONE. [Suspect]
     Active Substance: SPIRONOLACTONE
     Indication: CARDIAC FAILURE CONGESTIVE
     Dosage: 25 MG, 1X/DAY
     Route: 048
     Dates: start: 20170220, end: 20170225
  4. VALSARTAN/HCT [Interacting]
     Active Substance: HYDROCHLOROTHIAZIDE\VALSARTAN
     Indication: HYPERTENSION
     Dosage: 160/25, 1 CP DAILY
     Route: 048
     Dates: start: 20150908, end: 20170225
  5. FUROSEMIDE. [Interacting]
     Active Substance: FUROSEMIDE
     Indication: CARDIAC FAILURE CONGESTIVE
     Dosage: 80 MG, 1X/DAY
     Route: 048
     Dates: start: 20170220, end: 20170225
  6. LEVOFLOXACIN. [Concomitant]
     Active Substance: LEVOFLOXACIN
     Dosage: 500 MG, 1X/DAY
     Route: 048
     Dates: start: 20170213, end: 20170220
  7. METAMIZOLE [Concomitant]
     Active Substance: METAMIZOLE
     Indication: OSTEOARTHRITIS
     Dosage: 575 MG, 3X/DAY (1-1-1)
     Route: 048
     Dates: start: 20170120, end: 20170225

REACTIONS (2)
  - Drug interaction [Recovered/Resolved]
  - Acute kidney injury [Recovered/Resolved]

NARRATIVE: CASE EVENT DATE: 20170225
